FAERS Safety Report 26036783 (Version 1)
Quarter: 2025Q4

REPORT INFORMATION
  Report Type: Spontaneous
  Country: US (occurrence: US)
  Receive Date: 20251112
  Receipt Date: 20251112
  Transmission Date: 20260117
  Serious: No
  Sender: PARATEK PHARMACEUTICALS
  Company Number: US-PARATEK PHARMACEUTICALS, INC.-2024PTK00947

PATIENT
  Age: 71 Year
  Sex: Male

DRUGS (6)
  1. NUZYRA [Suspect]
     Active Substance: OMADACYCLINE
     Indication: Localised infection
     Dosage: 300 MG, 1X/DAY
     Route: 048
     Dates: start: 202409, end: 202409
  2. NUZYRA [Suspect]
     Active Substance: OMADACYCLINE
     Dosage: 150 MG, 2X/DAY
     Route: 048
     Dates: start: 202409, end: 202409
  3. TAMSULOSIN [Concomitant]
     Active Substance: TAMSULOSIN
  4. UNSPECIFIED BLOOD PRESSURE PILL [Concomitant]
  5. UNSPECIFIED INGREDIENT [Concomitant]
     Active Substance: UNSPECIFIED INGREDIENT
  6. VITAMINS NOS [Concomitant]
     Active Substance: VITAMINS

REACTIONS (3)
  - Headache [Not Recovered/Not Resolved]
  - Diarrhoea [Recovered/Resolved]
  - Intentional product use issue [Recovered/Resolved]

NARRATIVE: CASE EVENT DATE: 20240901
